FAERS Safety Report 9892887 (Version 1)
Quarter: 2014Q1

REPORT INFORMATION
  Report Type: Spontaneous
  Country: US (occurrence: US)
  Receive Date: 20140213
  Receipt Date: 20140213
  Transmission Date: 20141002
  Serious: No
  Sender: FDA-Public Use
  Company Number: US-B.I. PHARMACEUTICALS,INC./RIDGEFIELD-2014-BI-06193BP

PATIENT
  Age: 65 Year
  Sex: Female

DRUGS (7)
  1. JENTADUETO [Suspect]
     Indication: DIABETES MELLITUS
     Dosage: DOSE PER APPLICATION AND DAILY DOSE: 2.5 MG/ 1000MG
     Route: 048
     Dates: start: 20130906, end: 20140112
  2. ASPIRIN [Concomitant]
     Dosage: 325 MG
     Route: 048
  3. AMLODIPINE/BENAZEPRIL [Concomitant]
     Dosage: DOSE PER APPLICATION AND DAILY DOSE: 10/20 (NO UNIT)
     Route: 048
  4. SIMVASTATIN [Concomitant]
     Dosage: 20 MG
     Route: 048
  5. BYSTOLIC [Concomitant]
     Dosage: 10 MG
     Route: 048
  6. NEXIUM [Concomitant]
     Dosage: 40 MG
     Route: 048
  7. HYDROCHLOROTHIAZIDE [Concomitant]
     Dosage: 12.5 MG
     Route: 048

REACTIONS (6)
  - Arthralgia [Not Recovered/Not Resolved]
  - Arthralgia [Recovered/Resolved]
  - Fatigue [Recovered/Resolved]
  - Insomnia [Recovered/Resolved]
  - Muscle spasms [Recovered/Resolved]
  - Paraesthesia [Recovered/Resolved]
